FAERS Safety Report 4666309-1 (Version None)
Quarter: 2005Q2

REPORT INFORMATION
  Report Type: 
  Country: None (occurrence: None)
  Receive Date: 20050518
  Receipt Date: 20050506
  Transmission Date: 20051028
  Serious: Yes (Death)
  Sender: FDA-Public Use
  Company Number: 2005061324

PATIENT
  Age: 32 Year
  Sex: Male
  Weight: 60 kg

DRUGS (8)
  1. BEXTRA [Suspect]
     Indication: PAIN
     Dosage: (40 MG, AS NECESSARY),ORAL
     Route: 048
     Dates: start: 20040930
  2. BEXTRA [Suspect]
     Indication: RHEUMATOID ARTHRITIS
     Dosage: (40 MG, AS NECESSARY),ORAL
     Route: 048
     Dates: start: 20040930
  3. ROFECOXIB [Concomitant]
  4. CELECOXIB (CELECOXIB) [Concomitant]
  5. METHOTREXATE [Concomitant]
  6. PREDNISONE [Concomitant]
  7. FOLIC ACID [Concomitant]
  8. MELOXICAM [Concomitant]

REACTIONS (1)
  - MYOCARDIAL INFARCTION [None]
